FAERS Safety Report 9009006 (Version 2)
Quarter: 2013Q1

REPORT INFORMATION
  Report Type: Spontaneous
  Country: JP (occurrence: JP)
  Receive Date: 20130111
  Receipt Date: 20130131
  Transmission Date: 20140127
  Serious: Yes (Hospitalization)
  Sender: FDA-Public Use
  Company Number: JP-PFIZER INC-2013013121

PATIENT
  Age: 87 Year
  Sex: Female

DRUGS (5)
  1. LYRICA [Suspect]
     Indication: HERPES ZOSTER
     Dosage: 75 MG, 1X/DAY
     Route: 048
     Dates: start: 20121219, end: 20121226
  2. PRORENAL [Concomitant]
     Dosage: UNK
     Route: 048
     Dates: start: 201208
  3. NEUROTROPIN [Concomitant]
     Indication: HERPES ZOSTER
     Dosage: UNK
     Route: 048
     Dates: start: 201208
  4. GOSHAJINKIGAN [Concomitant]
     Dosage: UNK
     Dates: start: 201208
  5. JUVELA [Concomitant]
     Dosage: UNK
     Dates: start: 201208

REACTIONS (3)
  - Nephrogenic anaemia [Recovered/Resolved]
  - Flank pain [Unknown]
  - Dizziness [Unknown]
